FAERS Safety Report 6684935-5 (Version None)
Quarter: 2010Q2

REPORT INFORMATION
  Report Type: 
  Country: None (occurrence: None)
  Receive Date: 20100416
  Receipt Date: 20100406
  Transmission Date: 20101027
  Serious: Yes (Hospitalization, Other)
  Sender: FDA-Public Use
  Company Number: JP-ELI_LILLY_AND_COMPANY-JP201003005018

PATIENT
  Age: 71 Year
  Sex: Female
  Weight: 48.5 kg

DRUGS (29)
  1. PEMETREXED [Suspect]
     Indication: LUNG ADENOCARCINOMA STAGE IV
     Dosage: 700 MG, OTHER
     Route: 042
     Dates: start: 20090915, end: 20091021
  2. CISPLATIN [Concomitant]
     Indication: LUNG ADENOCARCINOMA STAGE IV
     Dosage: 100 MG, OTHER
     Route: 042
     Dates: start: 20090915, end: 20091021
  3. PANVITAN [Concomitant]
     Dosage: 1 G, DAILY (1/D)
     Route: 048
     Dates: start: 20090907, end: 20091119
  4. METHYCOBAL [Concomitant]
     Dosage: 1 MG, OTHER
     Route: 030
     Dates: start: 20090908, end: 20091112
  5. DECADRON [Concomitant]
     Dosage: EVERY PAMETREXED ADMINISTRATION
     Route: 048
     Dates: start: 20090914, end: 20090914
  6. DECADRON [Concomitant]
     Dosage: EVERY PAMETREXED ADMINISTRATION
     Route: 048
     Dates: start: 20091020, end: 20091020
  7. KYTRIL [Concomitant]
     Dosage: EVERY PAMETREXED ADMINISTRATION
     Route: 042
     Dates: start: 20090915, end: 20091023
  8. PRIMPERAN /00041901/ [Concomitant]
     Dates: start: 20091024, end: 20091025
  9. SOLETON [Concomitant]
     Indication: OSTEOARTHRITIS
     Dosage: BEFORE PEMETREXED ADMINISTRATION
     Dates: end: 20091119
  10. MYONAL /00287502/ [Concomitant]
     Indication: OSTEOARTHRITIS
     Dosage: BEFORE PAMETREXED ADMINISTRATION
     Route: 048
     Dates: end: 20091119
  11. SELBEX [Concomitant]
     Indication: GASTRITIS
     Dosage: BEFORE PAMETREXED ADMINISTRATION
     Route: 048
     Dates: end: 20091119
  12. NORVASC [Concomitant]
     Indication: HYPERTENSION
     Dosage: BEFORE PAMETREXED ADMINISTRATION
     Route: 048
     Dates: end: 20091119
  13. LIPITOR [Concomitant]
     Indication: HYPERCHOLESTEROLAEMIA
     Dosage: BEFORE PAMETREXED ADMINISTRATION
     Route: 048
     Dates: end: 20091119
  14. AMOBAN [Concomitant]
     Indication: INSOMNIA
     Dosage: BEFORE PAMETREXED ADMINISTRATION
     Route: 048
     Dates: end: 20091119
  15. ALLEGRA [Concomitant]
     Indication: ECZEMA
     Dosage: BEFORE PAMETREXED ADMINISTRATION
     Route: 048
     Dates: end: 20090930
  16. SENNOSIDE [Concomitant]
     Indication: CONSTIPATION
     Route: 048
     Dates: start: 20090917, end: 20091119
  17. ALLELOCK [Concomitant]
     Indication: RASH
     Route: 048
     Dates: start: 20091001, end: 20091021
  18. OXYCONTIN [Concomitant]
     Indication: CANCER PAIN
     Route: 048
     Dates: start: 20091013, end: 20091017
  19. OXINORM [Concomitant]
     Indication: CANCER PAIN
     Route: 048
     Dates: start: 20091013, end: 20091119
  20. PROCHLORPERAZINE [Concomitant]
     Indication: PROPHYLAXIS
     Dates: start: 20091013, end: 20091021
  21. MAGLAX [Concomitant]
     Indication: PROPHYLAXIS
     Route: 048
     Dates: start: 20091013, end: 20091119
  22. MYSLEE [Concomitant]
     Indication: INSOMNIA
     Route: 048
     Dates: start: 20091015, end: 20091015
  23. DUROTEP [Concomitant]
     Indication: CANCER PAIN
     Dosage: UNK, UNK
     Route: 062
     Dates: start: 20091017, end: 20091120
  24. MUCODYNE [Concomitant]
     Indication: PRODUCTIVE COUGH
     Route: 048
     Dates: start: 20091021, end: 20091119
  25. DESPA [Concomitant]
     Indication: STOMATITIS
     Route: 061
     Dates: start: 20091027, end: 20091119
  26. LANDSEN [Concomitant]
     Indication: ANALGESIC INTERVENTION SUPPORTIVE THERAPY
     Route: 048
     Dates: start: 20091110, end: 20091119
  27. RISPERDAL [Concomitant]
     Indication: DELIRIUM
     Dates: start: 20091118, end: 20091118
  28. DECADRON [Concomitant]
     Dosage: EVERY PAMETREXED ADMINISTRATION
     Route: 042
     Dates: start: 20090915, end: 20090917
  29. DECADRON [Concomitant]
     Dosage: EVERY PAMETREXED ADMINISTRATION
     Route: 042
     Dates: start: 20091021, end: 20091023

REACTIONS (4)
  - ANAEMIA [None]
  - HYPOALBUMINAEMIA [None]
  - HYPONATRAEMIA [None]
  - PNEUMONIA ASPIRATION [None]
